FAERS Safety Report 17031672 (Version 1)
Quarter: 2019Q4

REPORT INFORMATION
  Report Type: Spontaneous
  Country: US (occurrence: US)
  Receive Date: 20191113
  Receipt Date: 20191113
  Transmission Date: 20200122
  Serious: No
  Sender: FDA-Public Use
  Company Number: None

PATIENT
  Age: 63 Year
  Sex: Female

DRUGS (1)
  1. IRBESARTAN TAB [Suspect]
     Active Substance: IRBESARTAN
     Route: 048
     Dates: start: 20191111, end: 20191112

REACTIONS (3)
  - Dysgeusia [None]
  - Tongue discomfort [None]
  - Retching [None]

NARRATIVE: CASE EVENT DATE: 20191111
